FAERS Safety Report 8601554-1 (Version None)
Quarter: 2012Q3

REPORT INFORMATION
  Report Type: 
  Country: None (occurrence: None)
  Receive Date: 20120817
  Receipt Date: 20120426
  Transmission Date: 20120928
  Serious: Yes (Other)
  Sender: FDA-Public Use
  Company Number: US-BRISTOL-MYERS SQUIBB COMPANY-16228967

PATIENT
  Age: 75 Year
  Sex: Male
  Weight: 78 kg

DRUGS (9)
  1. MAGNESIUM HYDROXIDE TAB [Concomitant]
  2. LIPITOR [Concomitant]
     Route: 048
  3. LASIX [Concomitant]
     Route: 048
  4. SPRYCEL [Suspect]
     Indication: CHRONIC MYELOID LEUKAEMIA
     Dosage: INTERRUPTED FROM 13-21OCT11.21OCT11 RESTARTED WITH REDUCED DOSE 50MG DAILY ON 30AUG2011
     Route: 048
     Dates: start: 20110820
  5. DEXLANSOPRAZOLE [Concomitant]
     Dosage: TRADE: DEXILANT
  6. POTASSIUM CHLORIDE [Concomitant]
     Route: 048
  7. DILTIAZEM HCL [Concomitant]
     Route: 048
  8. SUCRALFATE [Concomitant]
     Dosage: TAB
  9. MIRALAX [Concomitant]

REACTIONS (4)
  - PLEURAL EFFUSION [None]
  - NAUSEA [None]
  - COUGH [None]
  - CONSTIPATION [None]
